FAERS Safety Report 7350248-1 (Version None)
Quarter: 2011Q1

REPORT INFORMATION
  Report Type: 
  Country: None (occurrence: None)
  Receive Date: 20110222
  Receipt Date: 20100927
  Transmission Date: 20110831
  Serious: Yes (Hospitalization, Other)
  Sender: FDA-Public Use
  Company Number: 017560

PATIENT
  Age: 40 Year
  Sex: Male

DRUGS (3)
  1. LACOSAMIDE [Suspect]
     Dosage: (200 MG)
  2. DEPAKOTE [Suspect]
  3. PLAVIX [Suspect]

REACTIONS (1)
  - CEREBROVASCULAR ACCIDENT [None]
